FAERS Safety Report 8831601 (Version 1)
Quarter: 2012Q4

REPORT INFORMATION
  Report Type: 
  Country: US (occurrence: US)
  Receive Date: 20121009
  Receipt Date: 20121009
  Transmission Date: 20130627
  Serious: Yes (Hospitalization, Disabling, Other)
  Sender: FDA-Public Use
  Company Number: US-GLAXOSMITHKLINE-A0996270A

PATIENT
  Age: 50 Year
  Sex: Male

DRUGS (4)
  1. LAMOTRIGINE [Suspect]
     Indication: CONVULSION
     Dosage: 100MG Twice per day
     Route: 048
     Dates: start: 20120809
  2. LISINOPRIL [Concomitant]
  3. MULTIVITAMIN [Concomitant]
  4. DILANTIN [Concomitant]
     Indication: CONVULSION
     Dates: end: 201207

REACTIONS (3)
  - Hallucination [Recovered/Resolved]
  - Accident [Recovered/Resolved]
  - Imprisonment [Recovered/Resolved]
